FAERS Safety Report 8800734 (Version 2)
Quarter: 2014Q3

REPORT INFORMATION
  Report Type: Report from Study
  Country: US (occurrence: US)
  Receive Date: 20120921
  Receipt Date: 20140901
  Transmission Date: 20150326
  Serious: Yes (Death, Other)
  Sender: FDA-Public Use
  Company Number: US-ROCHE-1124652

PATIENT
  Sex: Male
  Weight: 75.54 kg

DRUGS (11)
  1. IRESSA [Concomitant]
     Active Substance: GEFITINIB
  2. ADRIAMYCIN [Concomitant]
     Active Substance: DOXORUBICIN HYDROCHLORIDE
  3. AVASTIN [Suspect]
     Active Substance: BEVACIZUMAB
     Indication: BREAST CANCER MALE
     Route: 065
  4. AVASTIN [Suspect]
     Active Substance: BEVACIZUMAB
     Indication: BREAST CANCER MALE
  5. DOCETAXEL [Concomitant]
     Active Substance: DOCETAXEL
  6. PACLITAXEL. [Concomitant]
     Active Substance: PACLITAXEL
  7. TARCEVA [Suspect]
     Active Substance: ERLOTINIB HYDROCHLORIDE
     Indication: BREAST CANCER MALE
     Route: 065
  8. TARCEVA [Suspect]
     Active Substance: ERLOTINIB HYDROCHLORIDE
     Indication: BREAST CANCER METASTATIC
  9. AVASTIN [Suspect]
     Active Substance: BEVACIZUMAB
     Indication: BONE CANCER
  10. AVASTIN [Suspect]
     Active Substance: BEVACIZUMAB
     Indication: BREAST CANCER METASTATIC
  11. AVASTIN [Suspect]
     Active Substance: BEVACIZUMAB
     Indication: BONE CANCER

REACTIONS (5)
  - Off label use [Unknown]
  - Death [Fatal]
  - Bone cancer [Unknown]
  - Neoplasm malignant [Unknown]
  - Malignant pleural effusion [Unknown]
